FAERS Safety Report 11632983 (Version 6)
Quarter: 2016Q3

REPORT INFORMATION
  Report Type: Report from Study
  Country: CH (occurrence: CH)
  Receive Date: 20151015
  Receipt Date: 20160824
  Transmission Date: 20161109
  Serious: Yes (Death, Hospitalization)
  Sender: FDA-Public Use
  Company Number: CH-PFIZER INC-2015334914

PATIENT
  Age: 70 Year
  Sex: Female
  Weight: 64 kg

DRUGS (6)
  1. PALBOCICLIB [Suspect]
     Active Substance: PALBOCICLIB
     Dosage: 100 MG, ALTERNATE DAY
     Route: 048
     Dates: start: 20160108, end: 20160129
  2. PALBOCICLIB [Suspect]
     Active Substance: PALBOCICLIB
     Indication: BREAST CANCER METASTATIC
     Dosage: 125 MG, UNK
     Route: 048
     Dates: start: 20150911, end: 20150925
  3. MST /00036302/ [Suspect]
     Active Substance: MORPHINE SULFATE
     Indication: METASTASES TO BONE
     Dosage: 10 MG, 2X1
     Dates: start: 20150918
  4. MST /00036302/ [Suspect]
     Active Substance: MORPHINE SULFATE
     Dosage: UNK
  5. CO-DIOVAN [Concomitant]
     Active Substance: HYDROCHLOROTHIAZIDE\VALSARTAN
     Indication: HYPERTENSION
     Dosage: 160/125MG 1/2
     Route: 048
  6. DAFALGAN [Concomitant]
     Active Substance: ACETAMINOPHEN
     Dosage: 1 G, 4X/DAY
     Route: 048

REACTIONS (11)
  - Systemic lupus erythematosus [Unknown]
  - Transaminases increased [Unknown]
  - Nausea [Unknown]
  - Pancytopenia [Recovered/Resolved]
  - Breast cancer metastatic [Fatal]
  - Disease recurrence [Unknown]
  - Vomiting [Unknown]
  - Renal failure [Not Recovered/Not Resolved]
  - Pyrexia [Not Recovered/Not Resolved]
  - Disease progression [Fatal]
  - General physical health deterioration [Unknown]

NARRATIVE: CASE EVENT DATE: 20150920
